FAERS Safety Report 5389871-2 (Version None)
Quarter: 2007Q3

REPORT INFORMATION
  Report Type: 
  Country: None (occurrence: None)
  Receive Date: 20070718
  Receipt Date: 20070710
  Transmission Date: 20080115
  Serious: Yes (Hospitalization)
  Sender: FDA-Public Use
  Company Number: PHBS2007NL11566

PATIENT
  Age: 74 Year
  Sex: Female

DRUGS (5)
  1. STALEVO 100 [Suspect]
     Indication: PARKINSON'S DISEASE
     Dosage: 200 MG, 6QD
     Route: 065
     Dates: start: 20040401, end: 20070501
  2. MADOPAR [Concomitant]
     Dosage: 125 MG, QD
     Route: 065
     Dates: start: 20070321
  3. AZILECT [Concomitant]
     Dosage: 1 MG, QD
     Route: 065
     Dates: start: 20070314, end: 20070416
  4. THYRAX DUOTAB [Concomitant]
     Dosage: 0.1 MG/D
     Route: 065
  5. TRIMETHOPRIM [Concomitant]
     Indication: URINARY TRACT INFECTION
     Dosage: 100 MG/D
     Route: 065

REACTIONS (5)
  - CONFUSIONAL STATE [None]
  - HALLUCINATION [None]
  - HYPERVENTILATION [None]
  - ORTHOSTATIC HYPOTENSION [None]
  - PANIC ATTACK [None]
